FAERS Safety Report 15883744 (Version 1)
Quarter: 2019Q1

REPORT INFORMATION
  Report Type: Spontaneous
  Country: US (occurrence: US)
  Receive Date: 20190107
  Receipt Date: 20190107
  Transmission Date: 20190417
  Serious: Yes (Hospitalization)
  Sender: FDA-Public Use
  Company Number: None

PATIENT
  Age: 64 Year
  Weight: 73.2 kg

DRUGS (2)
  1. CARBOPLATIN. [Suspect]
     Active Substance: CARBOPLATIN
     Dates: end: 20181210
  2. ETOPOSIDE (VP-16) [Suspect]
     Active Substance: ETOPOSIDE
     Dates: end: 20181212

REACTIONS (4)
  - Pleural effusion [None]
  - Blood albumin increased [None]
  - Neutrophil count decreased [None]
  - Respiratory distress [None]

NARRATIVE: CASE EVENT DATE: 20181225
